FAERS Safety Report 9508280 (Version 1)
Quarter: 2013Q3

REPORT INFORMATION
  Report Type: Spontaneous
  Country: US (occurrence: US)
  Receive Date: 20130909
  Receipt Date: 20130909
  Transmission Date: 20140515
  Serious: Yes (Hospitalization)
  Sender: FDA-Public Use
  Company Number: US-B.I. PHARMACEUTICALS,INC./RIDGEFIELD-2013-BI-27091BP

PATIENT
  Sex: Male

DRUGS (5)
  1. COMBIVENT [Suspect]
     Indication: EMPHYSEMA
     Dosage: STRENGTH: 18 MCG / 103 MCG; DAILY DOSE: 144 MCG/ 824 MCG
     Route: 055
     Dates: start: 2012, end: 201308
  2. PLAVIX [Concomitant]
     Dosage: 75 MG
     Route: 048
  3. ASPIRIN [Concomitant]
     Dosage: 81 MG
     Route: 048
  4. ALBUTEROL INHALER [Concomitant]
     Route: 055
  5. ASMINEX [Concomitant]
     Route: 055

REACTIONS (12)
  - Coronary artery occlusion [Recovered/Resolved]
  - Joint swelling [Not Recovered/Not Resolved]
  - Diarrhoea [Recovered/Resolved]
  - Nephrolithiasis [Not Recovered/Not Resolved]
  - Hypothyroidism [Not Recovered/Not Resolved]
  - Dysphagia [Not Recovered/Not Resolved]
  - Dysphonia [Not Recovered/Not Resolved]
  - Oropharyngeal pain [Not Recovered/Not Resolved]
  - Stomatitis [Not Recovered/Not Resolved]
  - Tongue disorder [Not Recovered/Not Resolved]
  - Dry mouth [Not Recovered/Not Resolved]
  - Dyspnoea [Not Recovered/Not Resolved]
